FAERS Safety Report 7235744-X (Version None)
Quarter: 2011Q1

REPORT INFORMATION
  Report Type: 
  Country: None (occurrence: None)
  Receive Date: 20110110
  Receipt Date: 20101227
  Transmission Date: 20110831
  Serious: Yes (Hospitalization, Disabling)
  Sender: FDA-Public Use
  Company Number: DSA_44604_2011

PATIENT
  Sex: Female

DRUGS (5)
  1. IBUPROFEN [Suspect]
     Indication: PRODUCT USED FOR UNKNOWN INDICATION
     Dosage: 600 MG PRN ORAL
     Route: 048
  2. DILTIAZEM [Suspect]
     Indication: ESSENTIAL HYPERTENSION
     Dosage: 90 MG BID ORAL, 270 MG, 180 MG IN AM, 90 MG IN PM 270 MG DAILY
     Route: 048
     Dates: start: 20100101, end: 20100815
  3. RISPERDAL [Suspect]
     Indication: ANXIETY DISORDER
  4. SEROQUEL [Suspect]
     Indication: ANXIETY DISORDER
     Dosage: 25 MG QD ORAL
     Route: 048
  5. ASPIRIN [Concomitant]

REACTIONS (14)
  - ATAXIA [None]
  - CONDITION AGGRAVATED [None]
  - VENTRICULAR EXTRASYSTOLES [None]
  - BUNDLE BRANCH BLOCK RIGHT [None]
  - INCORRECT DOSE ADMINISTERED [None]
  - HYPERTENSION [None]
  - SINUS BRADYCARDIA [None]
  - BUNDLE BRANCH BLOCK LEFT [None]
  - GASTROENTERITIS [None]
  - GAIT DISTURBANCE [None]
  - BALANCE DISORDER [None]
  - CONSTIPATION [None]
  - RENAL FAILURE [None]
  - TREATMENT NONCOMPLIANCE [None]
